FAERS Safety Report 9238288 (Version 5)
Quarter: 2013Q3

REPORT INFORMATION
  Report Type: Spontaneous
  Country: DE (occurrence: None)
  Receive Date: 20130416
  Receipt Date: 20130724
  Transmission Date: 20140515
  Serious: Yes (Other)
  Sender: FDA-Public Use
  Company Number: 1304-486

PATIENT
  Sex: 0

DRUGS (1)
  1. EYLEA [Suspect]
     Indication: AGE-RELATED MACULAR DEGENERATION
     Dates: start: 20130404, end: 20130404

REACTIONS (4)
  - Vitreous opacities [None]
  - Blindness [None]
  - Toxicity to various agents [None]
  - Pseudoendophthalmitis [None]
